FAERS Safety Report 4319716-0 (Version None)
Quarter: 2004Q1

REPORT INFORMATION
  Report Type: 
  Country: None (occurrence: None)
  Receive Date: 20040316
  Receipt Date: 20040304
  Transmission Date: 20041129
  Serious: Yes (Congenital Anomaly)
  Sender: FDA-Public Use
  Company Number: 04P-163-0252678-00

PATIENT
  Age: 1 Day
  Sex: Female

DRUGS (1)
  1. KALETRA [Suspect]

REACTIONS (3)
  - CONGENITAL ANOMALY [None]
  - MATERNAL DRUGS AFFECTING FOETUS [None]
  - POLYDACTYLY [None]
